FAERS Safety Report 4858178-1 (Version None)
Quarter: 2005Q4

REPORT INFORMATION
  Report Type: 
  Country: None (occurrence: None)
  Receive Date: 20051219
  Receipt Date: 20050318
  Transmission Date: 20060501
  Serious: No
  Sender: FDA-Public Use
  Company Number: US-GLAXOSMITHKLINE-A0550359A

PATIENT
  Sex: Female

DRUGS (2)
  1. NICODERM CQ [Suspect]
     Dates: start: 20050221, end: 20050223
  2. NICODERM CQ [Suspect]
     Dates: start: 20050224, end: 20050317

REACTIONS (8)
  - ANOREXIA [None]
  - ASTHENIA [None]
  - DIZZINESS [None]
  - HEART RATE INCREASED [None]
  - LETHARGY [None]
  - OEDEMA PERIPHERAL [None]
  - SOMNOLENCE [None]
  - SWELLING [None]
